FAERS Safety Report 19084375 (Version 3)
Quarter: 2021Q2

REPORT INFORMATION
  Report Type: Spontaneous
  Country: JP (occurrence: JP)
  Receive Date: 20210401
  Receipt Date: 20210428
  Transmission Date: 20210717
  Serious: Yes (Hospitalization, Other)
  Sender: FDA-Public Use
  Company Number: JP-DSJP-DSJ-2021-109682

PATIENT
  Age: 72 Year
  Sex: Male
  Weight: 49 kg

DRUGS (14)
  1. DAIPHEN [Suspect]
     Active Substance: SULFAMETHOXAZOLE\TRIMETHOPRIM
     Indication: PNEUMOCYSTIS JIROVECII PNEUMONIA
     Dosage: 1 DF, QD
     Route: 048
     Dates: start: 20210212, end: 20210327
  2. LOXOPROFEN                         /00890702/ [Concomitant]
     Active Substance: LOXOPROFEN
     Indication: PRODUCT USED FOR UNKNOWN INDICATION
     Dosage: 60 MG, AS NEEDED
     Route: 048
     Dates: start: 20210129, end: 20210327
  3. DIACORT [Concomitant]
     Active Substance: DIFLORASONE DIACETATE
     Dosage: OPTIMAL DOSE, 3?4 TIMES/DAY
     Route: 050
     Dates: start: 20210326, end: 20210327
  4. LIXIANA TABLETS 60MG [Suspect]
     Active Substance: EDOXABAN TOSYLATE
     Indication: DEEP VEIN THROMBOSIS
     Dosage: 30 MG, QD
     Route: 048
     Dates: start: 20210309, end: 20210327
  5. FEBURIC [Concomitant]
     Active Substance: FEBUXOSTAT
     Indication: HYPERURICAEMIA
     Dosage: 20 MG, QD
     Route: 048
     Dates: start: 20210128, end: 20210327
  6. PREDONINE [Concomitant]
     Active Substance: PREDNISOLONE
     Indication: ORGANISING PNEUMONIA
     Dosage: 10 MG, QD
     Route: 048
     Dates: start: 20210312, end: 20210327
  7. BAKTAR [Suspect]
     Active Substance: SULFAMETHOXAZOLE\TRIMETHOPRIM
     Dosage: 1 DF, QD
     Route: 048
     Dates: start: 20210409, end: 20210410
  8. LANSOPRAZOLE. [Concomitant]
     Active Substance: LANSOPRAZOLE
     Indication: PROPHYLAXIS AGAINST GASTROINTESTINAL ULCER
     Dosage: 15 MG, QD
     Route: 048
     Dates: start: 20210212, end: 20210327
  9. DAIPHEN [Suspect]
     Active Substance: SULFAMETHOXAZOLE\TRIMETHOPRIM
     Indication: PROPHYLAXIS
  10. LIDOMEX [Concomitant]
     Active Substance: PREDNISOLONE VALERATE ACETATE
     Dosage: OPTIMAL DOSE, 2?3 TIMES/DAY
     Route: 050
     Dates: start: 20210326, end: 20210327
  11. AMLODIPINE                         /00972402/ [Suspect]
     Active Substance: AMLODIPINE BESYLATE
     Indication: HYPERTENSION
     Dosage: 5 MG, QD
     Route: 048
     Dates: start: 20210223, end: 20210327
  12. CILNIDIPINE [Suspect]
     Active Substance: CILNIDIPINE
     Dosage: UNK
     Route: 048
     Dates: start: 20210409, end: 20210410
  13. PREDONINE [Concomitant]
     Active Substance: PREDNISOLONE
     Dosage: 15 MG, BID
     Route: 048
     Dates: start: 20210409, end: 20210412
  14. CELESTAMINE [Concomitant]
     Active Substance: BETAMETHASONE\DEXCHLORPHENIRAMINE MALEATE
     Dosage: 1 DF, BID
     Route: 048
     Dates: start: 20210326, end: 20210327

REACTIONS (1)
  - Stevens-Johnson syndrome [Recovering/Resolving]

NARRATIVE: CASE EVENT DATE: 20210327
